FAERS Safety Report 7134711-4 (Version None)
Quarter: 2010Q4

REPORT INFORMATION
  Report Type: 
  Country: None (occurrence: None)
  Receive Date: 20101130
  Receipt Date: 20101130
  Transmission Date: 20110411
  Serious: Yes (Other)
  Sender: FDA-Public Use
  Company Number: None

PATIENT
  Age: 87 Year
  Sex: Female

DRUGS (8)
  1. REVLIMID [Suspect]
     Indication: MULTIPLE MYELOMA
     Dosage: 10MG DAILY ORALLY
     Route: 048
     Dates: start: 20100818, end: 20101013
  2. LOVASTATIN [Concomitant]
  3. ASPIRIN [Concomitant]
  4. PAMIDRONATE DISODIUM [Concomitant]
  5. MEGESTEROL [Concomitant]
  6. FAMOTIDINE [Concomitant]
  7. COMPAZINE [Concomitant]
  8. LEVOTHROID [Concomitant]

REACTIONS (1)
  - THROMBOCYTOPENIA [None]
